FAERS Safety Report 8401528 (Version 3)
Quarter: 2013Q2

REPORT INFORMATION
  Report Type: Report from Study
  Country: MX (occurrence: MX)
  Receive Date: 20120210
  Receipt Date: 20130418
  Transmission Date: 20140414
  Serious: Yes (Death, Hospitalization, Other)
  Sender: FDA-Public Use
  Company Number: PHHY2012MX010952

PATIENT
  Age: 72 Year
  Sex: Female

DRUGS (2)
  1. MYFORTIC [Suspect]
     Indication: RENAL DISORDER
     Dosage: 1 TABLET (180 MG) PER DAY
     Route: 048
     Dates: start: 201111, end: 20111226
  2. CALCORT [Concomitant]
     Indication: ARTHRITIS
     Dosage: 1 DF, UNK

REACTIONS (7)
  - Renal failure [Fatal]
  - Fluid retention [Fatal]
  - Septic shock [Fatal]
  - Dyspnoea [Fatal]
  - Renal disorder [Unknown]
  - Blood disorder [Unknown]
  - Hypertension [Unknown]
